FAERS Safety Report 5096538-7 (Version None)
Quarter: 2006Q3

REPORT INFORMATION
  Report Type: 
  Country: None (occurrence: None)
  Receive Date: 20060830
  Receipt Date: 20060814
  Transmission Date: 20061208
  Serious: Yes (Hospitalization, Other)
  Sender: FDA-Public Use
  Company Number: S06-CAN-03104-01

PATIENT
  Sex: Male

DRUGS (2)
  1. CIPRALEX (ESCITALOPRAM) [Suspect]
     Indication: DEPRESSION
     Dates: start: 20060101, end: 20060101
  2. CLONAZEPAM [Concomitant]

REACTIONS (4)
  - ANAPHYLACTIC REACTION [None]
  - DRUG HYPERSENSITIVITY [None]
  - DRUG WITHDRAWAL SYNDROME [None]
  - NONSPECIFIC REACTION [None]
